FAERS Safety Report 23873627 (Version 1)
Quarter: 2024Q2

REPORT INFORMATION
  Report Type: Spontaneous
  Country: US (occurrence: US)
  Receive Date: 20240520
  Receipt Date: 20240520
  Transmission Date: 20240716
  Serious: No
  Sender: FDA-Public Use
  Company Number: US-Stemline Therapeutics, Inc.-2024ST001480

PATIENT
  Age: 80 Year
  Sex: Male

DRUGS (1)
  1. ORSERDU [Suspect]
     Active Substance: ELACESTRANT
     Indication: Product used for unknown indication
     Dosage: 86 MG, 4 TABLETS, ONCE DAILY
     Route: 048
     Dates: start: 20240202

REACTIONS (7)
  - Hepatic lesion [Recovering/Resolving]
  - Tumour marker increased [Not Recovered/Not Resolved]
  - Dysgeusia [Not Recovered/Not Resolved]
  - Product use complaint [Unknown]
  - Product size issue [Unknown]
  - Abdominal discomfort [Not Recovered/Not Resolved]
  - Constipation [Not Recovered/Not Resolved]
